FAERS Safety Report 9601970 (Version 2)
Quarter: 2013Q4

REPORT INFORMATION
  Report Type: Spontaneous
  Country: JP (occurrence: None)
  Receive Date: 20131002
  Receipt Date: 20131018
  Transmission Date: 20140711
  Serious: Yes (Hospitalization, Other)
  Sender: FDA-Public Use
  Company Number: AXC-2013-000503

PATIENT
  Age: 65 Year
  Sex: Female

DRUGS (1)
  1. URSODEOXYCHOLIC ACID [Suspect]
     Indication: BILIARY CIRRHOSIS PRIMARY
     Route: 048

REACTIONS (8)
  - Systemic lupus erythematosus [None]
  - Lupus nephritis [None]
  - Thyroiditis chronic [None]
  - Pyrexia [None]
  - Complement factor decreased [None]
  - Pleural effusion [None]
  - Lymphocyte count decreased [None]
  - Haematuria [None]
